FAERS Safety Report 8382729-6 (Version None)
Quarter: 2012Q2

REPORT INFORMATION
  Report Type: 
  Country: None (occurrence: None)
  Receive Date: 20120524
  Receipt Date: 20120404
  Transmission Date: 20120825
  Serious: No
  Sender: FDA-Public Use
  Company Number: US-ALLERGAN-1204856US

PATIENT
  Age: 29 Year
  Sex: Female

DRUGS (2)
  1. LASTACAFT [Suspect]
     Indication: HYPERSENSITIVITY
     Route: 047
  2. LASTACAFT [Suspect]
     Indication: EYE PRURITUS

REACTIONS (3)
  - OCULAR HYPERAEMIA [None]
  - EYE INFLAMMATION [None]
  - EYE PRURITUS [None]
